FAERS Safety Report 5297992-8 (Version None)
Quarter: 2007Q2

REPORT INFORMATION
  Report Type: 
  Country: None (occurrence: None)
  Receive Date: 20070416
  Receipt Date: 20070410
  Transmission Date: 20071010
  Serious: Yes (Other)
  Sender: FDA-Public Use
  Company Number: JP-ROCHE-492403

PATIENT
  Age: 79 Year
  Sex: Male
  Weight: 50.9 kg

DRUGS (10)
  1. CAPECITABINE [Suspect]
     Indication: GASTRIC CANCER
     Dosage: AS PER PROTOCOL: FOR 14 DAYS EVERY 3 WEEKS (FROM PM OF DAY 1 TO AM OF DAY 15)
     Route: 048
     Dates: start: 20070219, end: 20070402
  2. CISPLATIN [Suspect]
     Indication: GASTRIC CANCER
     Route: 042
     Dates: start: 20070219, end: 20070402
  3. LANSOPRAZOLE [Suspect]
     Indication: DRUG USE FOR UNKNOWN INDICATION
     Route: 065
     Dates: end: 20070402
  4. BIFIDOBACTERIUM [Concomitant]
     Dates: end: 20070402
  5. SUCRALFATE [Concomitant]
     Dates: end: 20070329
  6. SODIUM ALGINATE [Concomitant]
     Dates: start: 20070216, end: 20070402
  7. FERROUS CITRATE [Concomitant]
     Dates: start: 20070217, end: 20070402
  8. METOCLOPRAMIDE [Concomitant]
     Dosage: PRN
     Dates: start: 20070222, end: 20070402
  9. SODIUM PICOSULFATE [Concomitant]
     Dosage: PRN
     Dates: start: 20070223, end: 20070402
  10. ALLOPURINOL [Concomitant]
     Dates: start: 20070222, end: 20070402

REACTIONS (1)
  - PYLORIC STENOSIS [None]
